FAERS Safety Report 9399311 (Version 1)
Quarter: 2013Q3

REPORT INFORMATION
  Report Type: Spontaneous
  Country: US (occurrence: US)
  Receive Date: 20130715
  Receipt Date: 20130715
  Transmission Date: 20140515
  Serious: No
  Sender: FDA-Public Use
  Company Number: US-PFIZER INC-2013204433

PATIENT
  Age: 70 Year
  Sex: Female
  Weight: 47.17 kg

DRUGS (3)
  1. XELJANZ [Suspect]
     Indication: RHEUMATOID ARTHRITIS
     Dosage: 5 MG, 2X/DAY
     Dates: start: 201303
  2. ALEVE [Concomitant]
     Indication: RHEUMATOID ARTHRITIS
     Dosage: 220 MG, DAILY
  3. ALEVE [Concomitant]
     Indication: PAIN

REACTIONS (1)
  - Nodule [Recovered/Resolved]
